FAERS Safety Report 11780582 (Version 1)
Quarter: 2015Q4

REPORT INFORMATION
  Report Type: Other
  Country: US (occurrence: US)
  Receive Date: 20151126
  Receipt Date: 20151126
  Transmission Date: 20160305
  Serious: Yes (Other)
  Sender: FDA-Public Use
  Company Number: US-DEXPHARM-20152282

PATIENT
  Age: 48 Year
  Sex: Female

DRUGS (2)
  1. ESOMEPRAOLE [Suspect]
     Active Substance: ESOMEPRAZOLE
     Indication: GASTROOESOPHAGEAL REFLUX DISEASE
  2. OMEPRAZOLE. [Suspect]
     Active Substance: OMEPRAZOLE
     Indication: GASTROOESOPHAGEAL REFLUX DISEASE

REACTIONS (6)
  - Clostridium difficile infection [Recovering/Resolving]
  - Hypertension [None]
  - Haemoglobin decreased [None]
  - Therapeutic response decreased [None]
  - Colitis [None]
  - Peritoneal dialysis complication [None]
